FAERS Safety Report 6258144-8 (Version None)
Quarter: 2009Q2

REPORT INFORMATION
  Report Type: 
  Country: None (occurrence: None)
  Receive Date: 20090630
  Receipt Date: 20080829
  Transmission Date: 20091009
  Serious: Yes (Hospitalization, Other)
  Sender: FDA-Public Use
  Company Number: M-08-0929

PATIENT
  Age: 64 Year
  Sex: Female

DRUGS (7)
  1. PACERONE [Suspect]
     Indication: ATRIAL FIBRILLATION
     Dosage: 200 MG, QD, PO
     Route: 048
     Dates: start: 20050131, end: 20070305
  2. VASOTEC [Concomitant]
  3. COREG [Concomitant]
  4. ALDACTONE [Concomitant]
  5. VYTORIN [Concomitant]
  6. LEVOTHYROXINE SODIUM [Concomitant]
  7. ASPIRIN [Concomitant]

REACTIONS (1)
  - PULMONARY TOXICITY [None]
